FAERS Safety Report 18627611 (Version 1)
Quarter: 2020Q4

REPORT INFORMATION
  Report Type: Spontaneous
  Country: SG (occurrence: SG)
  Receive Date: 20201217
  Receipt Date: 20201217
  Transmission Date: 20210114
  Serious: Yes (Other)
  Sender: FDA-Public Use
  Company Number: SG-SA-2020SA357396

PATIENT

DRUGS (4)
  1. CALCIUM ACETATE. [Suspect]
     Active Substance: CALCIUM ACETATE
  2. SEVELAMER SALT NOT SPECIFIED [Suspect]
     Active Substance: SEVELAMER
     Dosage: 1 DF, TID
     Route: 048
     Dates: start: 20201019
  3. CEFTAZIDIME. [Suspect]
     Active Substance: CEFTAZIDIME
     Route: 042
  4. CEFAZOLIN [Suspect]
     Active Substance: CEFAZOLIN
     Route: 042

REACTIONS (4)
  - Eosinophilia [Not Recovered/Not Resolved]
  - Transaminases increased [Not Recovered/Not Resolved]
  - Rash maculo-papular [Not Recovered/Not Resolved]
  - Drug reaction with eosinophilia and systemic symptoms [Not Recovered/Not Resolved]

NARRATIVE: CASE EVENT DATE: 20201030
